FAERS Safety Report 15567227 (Version 1)
Quarter: 2018Q4

REPORT INFORMATION
  Report Type: Spontaneous
  Country: FR (occurrence: FR)
  Receive Date: 20181030
  Receipt Date: 20181030
  Transmission Date: 20190205
  Serious: Yes (Hospitalization)
  Sender: FDA-Public Use
  Company Number: FR-TEVA-2018-FR-969859

PATIENT
  Age: 18 Year
  Sex: Female

DRUGS (2)
  1. TETRALYSAL 300 MG, G?LULE (LYMECYCLINE) [Suspect]
     Active Substance: LYMECYCLINE
     Indication: ACNE
     Dosage: 300 MILLIGRAM DAILY;
     Route: 048
     Dates: start: 20180526, end: 20180717
  2. ADAPALENE. [Suspect]
     Active Substance: ADAPALENE
     Indication: ACNE
     Route: 061
     Dates: end: 201807

REACTIONS (1)
  - Intracranial pressure increased [Not Recovered/Not Resolved]

NARRATIVE: CASE EVENT DATE: 20180717
